FAERS Safety Report 7291514-8 (Version None)
Quarter: 2011Q1

REPORT INFORMATION
  Report Type: 
  Country: None (occurrence: None)
  Receive Date: 20110201
  Receipt Date: 20110121
  Transmission Date: 20110831
  Serious: Yes (Life-Threatening)
  Sender: FDA-Public Use
  Company Number: 2010AL003263

PATIENT
  Age: 71 Year
  Sex: Female

DRUGS (4)
  1. ESCITALOPRAM [Suspect]
     Indication: DEPRESSION
     Dosage: 5 MG;QD
     Dates: end: 20100525
  2. CENTYL MED KALIUMKLORID (SALURES-K) [Suspect]
     Indication: HYPERTENSION
     Dosage: PO
     Route: 048
     Dates: start: 20070101, end: 20100525
  3. SEROQUEL [Concomitant]
  4. MIRTAZAPINE [Suspect]
     Indication: DEPRESSION
     Dosage: 15 MG;PO
     Route: 048
     Dates: end: 20100525

REACTIONS (2)
  - DRUG INTERACTION [None]
  - BLOOD SODIUM DECREASED [None]
